FAERS Safety Report 5182906-1 (Version None)
Quarter: 2006Q4

REPORT INFORMATION
  Report Type: 
  Country: None (occurrence: None)
  Receive Date: 20061220
  Receipt Date: 20040713
  Transmission Date: 20070319
  Serious: Yes (Other)
  Sender: FDA-Public Use
  Company Number: FR-SANOFI-SYNTHELABO-A02200402242

PATIENT
  Age: 22 Year
  Sex: Female
  Weight: 50 kg

DRUGS (1)
  1. ZOLPIDEM TARTRATE [Suspect]
     Indication: SEXUAL ABUSE
     Dosage: UNK
     Route: 048
     Dates: start: 20040501, end: 20040501

REACTIONS (2)
  - AMNESIA [None]
  - VICTIM OF SEXUAL ABUSE [None]
